FAERS Safety Report 21532651 (Version 1)
Quarter: 2022Q4

REPORT INFORMATION
  Report Type: Spontaneous
  Country: US (occurrence: US)
  Receive Date: 20221101
  Receipt Date: 20221101
  Transmission Date: 20230113
  Serious: Yes (Hospitalization, Other)
  Sender: FDA-Public Use
  Company Number: US-ALEMBIC PHARMACUETICALS LIMITED-2022SCAL000468

PATIENT

DRUGS (4)
  1. HYDROCHLOROTHIAZIDE [Suspect]
     Active Substance: HYDROCHLOROTHIAZIDE
     Indication: Product used for unknown indication
     Dosage: UNK
     Route: 065
  2. VALSARTAN [Suspect]
     Active Substance: VALSARTAN
     Indication: Product used for unknown indication
     Dosage: UNK
     Route: 065
  3. LABETALOL [Suspect]
     Active Substance: LABETALOL\LABETALOL HYDROCHLORIDE
     Indication: Product used for unknown indication
     Dosage: UNK
     Route: 065
  4. DEXTROSE [Concomitant]
     Active Substance: DEXTROSE
     Indication: Blood glucose
     Dosage: 50% DEXTROSE INFUSION
     Route: 065

REACTIONS (3)
  - Bradycardia [Recovering/Resolving]
  - Hypotension [Recovering/Resolving]
  - Toxicity to various agents [Recovering/Resolving]
